FAERS Safety Report 5282098-4 (Version None)
Quarter: 2007Q1

REPORT INFORMATION
  Report Type: 
  Country: None (occurrence: None)
  Receive Date: 20070330
  Receipt Date: 20070323
  Transmission Date: 20070707
  Serious: Yes (Death)
  Sender: FDA-Public Use
  Company Number: GB-PFIZER INC-2006116678

PATIENT
  Age: 64 Year
  Sex: Female
  Weight: 56.9 kg

DRUGS (4)
  1. EPIRUBICIN HYDROCHLORIDE [Suspect]
     Indication: BREAST CANCER
     Route: 042
     Dates: start: 20060808, end: 20060808
  2. CYCLOPHOSPHAMIDE [Suspect]
     Indication: BREAST CANCER
     Route: 042
     Dates: start: 20060808, end: 20060808
  3. ADCAL-D3 [Concomitant]
     Dosage: FREQ:DAILY
     Route: 048
  4. ZOMETA [Concomitant]
     Route: 042

REACTIONS (2)
  - DEEP VEIN THROMBOSIS [None]
  - NEUTROPHIL COUNT DECREASED [None]
